FAERS Safety Report 10034847 (Version 1)
Quarter: 2014Q1

REPORT INFORMATION
  Report Type: Spontaneous
  Country: US (occurrence: None)
  Receive Date: 20140306
  Receipt Date: 20140306
  Transmission Date: 20141002
  Serious: Yes (Other)
  Sender: FDA-Public Use
  Company Number: 163-21880-13110786

PATIENT
  Age: 69 Year
  Sex: Female

DRUGS (2)
  1. REVLIMID ( LENALIDOMIDE) (25 MILLIGRAM, CAPSULES) [Suspect]
     Indication: PLASMA CELL MYELOMA
     Dosage: 25 MG, 1 IN 1 D, PO
     Route: 048
     Dates: start: 201309
  2. OTHER CHEMOTHERAPY ( OTHER CHEMOTHERAPEUTICS) (UNKNOWN) [Concomitant]

REACTIONS (4)
  - Skin lesion [None]
  - Petechiae [None]
  - Skin ulcer [None]
  - Rash [None]
